FAERS Safety Report 16912690 (Version 2)
Quarter: 2019Q4

REPORT INFORMATION
  Report Type: Report from Study
  Country: CN (occurrence: CN)
  Receive Date: 20191014
  Receipt Date: 20191022
  Transmission Date: 20200122
  Serious: Yes (Other)
  Sender: FDA-Public Use
  Company Number: CN-ROCHE-2442026

PATIENT

DRUGS (1)
  1. CAPECITABINE. [Suspect]
     Active Substance: CAPECITABINE
     Indication: RECTAL CANCER
     Dosage: FROM DAY 1-14 OF RADIOTHERAPY, FOLLOWED BY A 7 DAY REST
     Route: 065

REACTIONS (1)
  - Gastrointestinal toxicity [Unknown]
